FAERS Safety Report 6649819-7 (Version None)
Quarter: 2010Q1

REPORT INFORMATION
  Report Type: 
  Country: None (occurrence: None)
  Receive Date: 20100325
  Receipt Date: 20100310
  Transmission Date: 20100710
  Serious: Yes (Hospitalization)
  Sender: FDA-Public Use
  Company Number: US-MYLANLABS-2010S1004006

PATIENT
  Age: 61 Year
  Sex: Male

DRUGS (6)
  1. VENLAFAXINE [Suspect]
     Indication: MAJOR DEPRESSION
     Dosage: EXTENDED-RELEASE FORMULATION
  2. VENLAFAXINE [Interacting]
     Dosage: EXTENDED-RELEASE FORMULATION
  3. METHADONE [Interacting]
     Indication: BACK PAIN
  4. CIPROFLOXACIN [Interacting]
  5. HYDROMORPHONE HCL [Concomitant]
     Indication: BACK PAIN
  6. OXYCODONE HCL [Concomitant]
     Indication: BACK PAIN

REACTIONS (3)
  - DRUG INTERACTION [None]
  - DRUG SCREEN POSITIVE [None]
  - SEROTONIN SYNDROME [None]
